FAERS Safety Report 5706129-X (Version None)
Quarter: 2008Q2

REPORT INFORMATION
  Report Type: 
  Country: None (occurrence: None)
  Receive Date: 20080415
  Receipt Date: 20080401
  Transmission Date: 20081010
  Serious: Yes (Hospitalization)
  Sender: FDA-Public Use
  Company Number: GB-BAUSCH-2008BL001438

PATIENT
  Age: 77 Year
  Sex: Male
  Weight: 75 kg

DRUGS (12)
  1. PREDNISOLONE [Suspect]
     Indication: COLITIS ULCERATIVE
     Route: 048
  2. ASCORBIC ACID [Concomitant]
     Indication: IRON DEFICIENCY
  3. ASPIRIN [Concomitant]
     Indication: CARDIOVASCULAR DISORDER
  4. ATORVASTATIN [Concomitant]
     Indication: CARDIOVASCULAR DISORDER
  5. FERROUS SULFATE TAB [Concomitant]
     Indication: IRON DEFICIENCY
  6. FUROSEMIDE [Concomitant]
     Indication: CARDIOVASCULAR DISORDER
  7. LANSOPRAZOLE [Concomitant]
     Indication: DRUG USE FOR UNKNOWN INDICATION
  8. MESALAMINE [Concomitant]
     Indication: COLITIS ULCERATIVE
  9. INSULIN MIXTARD [Concomitant]
  10. NEBIVOLOL HCL [Concomitant]
     Indication: CARDIOVASCULAR DISORDER
  11. SALOFALK ^AVENTIS^ [Concomitant]
     Indication: COLITIS ULCERATIVE
  12. SPIRONOLACTONE [Concomitant]
     Indication: CARDIOVASCULAR DISORDER

REACTIONS (1)
  - BLOOD GLUCOSE INCREASED [None]
